FAERS Safety Report 12325384 (Version 2)
Quarter: 2016Q2

REPORT INFORMATION
  Report Type: Spontaneous
  Country: TR (occurrence: TR)
  Receive Date: 20160502
  Receipt Date: 20160525
  Transmission Date: 20160815
  Serious: Yes (Death)
  Sender: FDA-Public Use
  Company Number: TR-CELGENEUS-TUR-2016048155

PATIENT

DRUGS (1)
  1. REVLIMID [Suspect]
     Active Substance: LENALIDOMIDE
     Indication: PLASMA CELL MYELOMA
     Route: 048
     Dates: start: 200501, end: 201207

REACTIONS (4)
  - Plasma cell myeloma [Unknown]
  - Plasma cell myeloma [Fatal]
  - Pneumonia [Unknown]
  - Cytopenia [Unknown]
